FAERS Safety Report 8862648 (Version 3)
Quarter: 2012Q4

REPORT INFORMATION
  Report Type: 
  Country: JP (occurrence: JP)
  Receive Date: 20121026
  Receipt Date: 20121120
  Transmission Date: 20130627
  Serious: Yes (Hospitalization)
  Sender: FDA-Public Use
  Company Number: JP-GE HEALTHCARE MEDICAL DIAGNOSTICS-OMPQ-NO-1210S-1137

PATIENT
  Age: 73 Year
  Sex: Female

DRUGS (6)
  1. OMNIPAQUE [Suspect]
     Indication: TAKAYASU^S ARTERITIS
     Route: 042
     Dates: start: 20121016, end: 20121016
  2. OMNIPAQUE [Suspect]
     Indication: DIAGNOSTIC PROCEDURE
  3. FAMOTIDINE [Concomitant]
  4. AMLODIPINE BESILATE [Concomitant]
  5. ZOLPIDEM [Concomitant]
  6. PREDONINE [Concomitant]

REACTIONS (1)
  - Anaphylactic shock [Recovered/Resolved]
